FAERS Safety Report 21996018 (Version 1)
Quarter: 2023Q1

REPORT INFORMATION
  Report Type: Spontaneous
  Country: US (occurrence: US)
  Receive Date: 20230215
  Receipt Date: 20230215
  Transmission Date: 20230418
  Serious: No
  Sender: FDA-Public Use
  Company Number: US-ALLERGAN-2236893US

PATIENT
  Age: 36 Year
  Sex: Male

DRUGS (1)
  1. TAZAROTENE [Suspect]
     Active Substance: TAZAROTENE
     Indication: Acne
     Dosage: UNK, QD

REACTIONS (4)
  - Erythema [Not Recovered/Not Resolved]
  - Rash [Not Recovered/Not Resolved]
  - Skin exfoliation [Not Recovered/Not Resolved]
  - Pruritus [Not Recovered/Not Resolved]

NARRATIVE: CASE EVENT DATE: 20221001
